FAERS Safety Report 11452873 (Version 1)
Quarter: 2015Q3

REPORT INFORMATION
  Report Type: Spontaneous
  Country: US (occurrence: US)
  Receive Date: 20150903
  Receipt Date: 20150903
  Transmission Date: 20151125
  Serious: No
  Sender: FDA-Public Use
  Company Number: US-MYLANLABS-2015M1001531

PATIENT
  Age: 49 Year
  Sex: Female

DRUGS (1)
  1. GEMCITABINE [Suspect]
     Active Substance: GEMCITABINE\GEMCITABINE HYDROCHLORIDE
     Indication: BREAST CANCER METASTATIC
     Dosage: 1600 MG, CYCLE, DAY 1, 8 OF 21 DAY CYCLE
     Route: 042
     Dates: start: 20110124, end: 20110307

REACTIONS (3)
  - Hypotension [Recovered/Resolved]
  - Nausea [Recovered/Resolved]
  - Dizziness [Recovered/Resolved]

NARRATIVE: CASE EVENT DATE: 20110228
